FAERS Safety Report 8916762 (Version 4)
Quarter: 2013Q1

REPORT INFORMATION
  Report Type: Spontaneous
  Country: JP (occurrence: JP)
  Receive Date: 20121120
  Receipt Date: 20130301
  Transmission Date: 20140127
  Serious: Yes (Hospitalization)
  Sender: FDA-Public Use
  Company Number: JP-009507513-1211JPN006830

PATIENT
  Age: 57 Year
  Sex: Male
  Weight: 83 kg

DRUGS (8)
  1. PEGINTRON [Suspect]
     Indication: CHRONIC HEPATITIS C
     Dosage: 1.5 MICROGRAM PER KILOGRAM, QW
     Route: 058
     Dates: start: 20120926, end: 20121024
  2. PEGINTRON [Suspect]
     Dosage: 1.5 MICROGRAM PER KILOGRAM, QW
     Route: 058
     Dates: start: 20121101
  3. REBETOL [Suspect]
     Indication: CHRONIC HEPATITIS C
     Dosage: 800 MG, QD
     Route: 048
     Dates: start: 20120926, end: 20121024
  4. REBETOL [Suspect]
     Dosage: 800 MG, QD
     Route: 048
     Dates: start: 20121031
  5. TELAVIC [Suspect]
     Indication: CHRONIC HEPATITIS C
     Dosage: 2250 MG, QD
     Route: 048
     Dates: start: 20120926, end: 20121023
  6. ALOSITOL [Suspect]
     Indication: HYPERURICAEMIA
     Dosage: 200 MG, QD
     Route: 048
     Dates: start: 20120928, end: 20121024
  7. LOXOPROFEN SODIUM [Concomitant]
     Indication: PYREXIA
     Dosage: DAILY DOSE UNKNOWN AS NEEDED, FORMULATION POR
     Route: 048
     Dates: start: 20120926, end: 20121024
  8. MYSLEE [Concomitant]
     Indication: INSOMNIA
     Dosage: DAILY DOSE UNKNOWN AS NEEDED, FORMULATION POR
     Route: 048
     Dates: start: 20121001

REACTIONS (1)
  - Erythema multiforme [Recovering/Resolving]
